FAERS Safety Report 11738914 (Version 1)
Quarter: 2015Q4

REPORT INFORMATION
  Report Type: Spontaneous
  Country: US (occurrence: US)
  Receive Date: 20151113
  Receipt Date: 20151113
  Transmission Date: 20160304
  Serious: No
  Sender: FDA-Public Use
  Company Number: US-ROCHE-1269181

PATIENT
  Age: 48 Year
  Sex: Female
  Weight: 66.74 kg

DRUGS (6)
  1. OMEGA 3 [Concomitant]
     Active Substance: OMEGA-3 FATTY ACIDS
     Dosage: DAILY
     Route: 048
  2. KADCYLA [Suspect]
     Active Substance: ADO-TRASTUZUMAB EMTANSINE
     Dosage: EVERY THREE WEEKS
     Route: 042
     Dates: start: 20130425
  3. WELLBUTRIN XL [Concomitant]
     Active Substance: BUPROPION HYDROCHLORIDE
  4. KADCYLA [Suspect]
     Active Substance: ADO-TRASTUZUMAB EMTANSINE
     Indication: BREAST CANCER METASTATIC
     Dosage: EVERY THIRD WEEK, HAD 7 TRATMENTS.
     Route: 042
     Dates: start: 20130424
  5. KYTRIL [Concomitant]
     Active Substance: GRANISETRON HYDROCHLORIDE
     Indication: NAUSEA
     Dosage: EVERY THREE WEEKS
     Route: 042
     Dates: start: 20130425
  6. BUPROPION. [Concomitant]
     Active Substance: BUPROPION
     Dosage: DAILY
     Route: 048

REACTIONS (4)
  - Photophobia [Not Recovered/Not Resolved]
  - Pain in extremity [Not Recovered/Not Resolved]
  - Vision blurred [Not Recovered/Not Resolved]
  - Visual acuity reduced [Not Recovered/Not Resolved]

NARRATIVE: CASE EVENT DATE: 201305
